FAERS Safety Report 5496679-6 (Version None)
Quarter: 2007Q4

REPORT INFORMATION
  Report Type: 
  Country: None (occurrence: None)
  Receive Date: 20071025
  Receipt Date: 20070816
  Transmission Date: 20080405
  Serious: No
  Sender: FDA-Public Use
  Company Number: A0661293A

PATIENT
  Age: 70 Year
  Sex: Female

DRUGS (6)
  1. ADVAIR DISKUS 100/50 [Suspect]
     Indication: ASTHMA
     Dosage: 500MG TWICE PER DAY
     Route: 055
  2. ALBUTEROL [Concomitant]
  3. NEXUM [Concomitant]
  4. VYTORIN [Concomitant]
  5. SINGULAIR [Concomitant]
  6. SYNTHROID [Concomitant]

REACTIONS (3)
  - FEELING JITTERY [None]
  - PALPITATIONS [None]
  - PHARMACEUTICAL PRODUCT COMPLAINT [None]
